FAERS Safety Report 5661960-4 (Version None)
Quarter: 2008Q1

REPORT INFORMATION
  Report Type: 
  Country: None (occurrence: None)
  Receive Date: 20080310
  Receipt Date: 20080310
  Transmission Date: 20080703
  Serious: Yes (Hospitalization)
  Sender: FDA-Public Use
  Company Number: None

PATIENT
  Age: 3 Year
  Sex: Female
  Weight: 14.9687 kg

DRUGS (3)
  1. TRIAMINIC LONG ACTING COUGH CHILDREN NOVARTIS CONSUMER HEALTH, INC [Suspect]
     Indication: COUGH
     Dosage: 1 TEASPOON 6-8 HOURS PO
     Route: 048
     Dates: start: 20080226, end: 20080226
  2. ALBUTEROL [Concomitant]
  3. SODIUM HYDROXIDE [Concomitant]

REACTIONS (9)
  - APHASIA [None]
  - BRONCHOPNEUMONIA [None]
  - FAECAL INCONTINENCE [None]
  - HEARING IMPAIRED [None]
  - MOVEMENT DISORDER [None]
  - MUSCULOSKELETAL STIFFNESS [None]
  - PNEUMONIA [None]
  - SCREAMING [None]
  - VISION BLURRED [None]
